FAERS Safety Report 8856131 (Version 1)
Quarter: 2012Q4

REPORT INFORMATION
  Report Type: 
  Country: US (occurrence: US)
  Receive Date: 20121023
  Receipt Date: 20121023
  Transmission Date: 20130627
  Serious: Yes (Other)
  Sender: FDA-Public Use
  Company Number: US-AMGEN-USASP2012058122

PATIENT
  Sex: Male

DRUGS (3)
  1. ENBREL [Suspect]
     Indication: PRODUCT USED FOR UNKNOWN INDICATION
     Dosage: 50 mg, qwk
     Route: 058
  2. TYLENOL /00020001/ [Concomitant]
     Dosage: 500 mg, UNK
  3. ALEVE [Concomitant]
     Dosage: 220 mg, UNK

REACTIONS (2)
  - Uveitis [Unknown]
  - Drug ineffective [Unknown]
